FAERS Safety Report 7052761-3 (Version None)
Quarter: 2010Q4

REPORT INFORMATION
  Report Type: 
  Country: None (occurrence: None)
  Receive Date: 20101012
  Receipt Date: 20100929
  Transmission Date: 20110411
  Serious: Yes (Other)
  Sender: FDA-Public Use
  Company Number: 2010SP052085

PATIENT
  Age: 4 Year
  Sex: Female

DRUGS (3)
  1. DULERA TABLET [Suspect]
     Indication: PRODUCT USED FOR UNKNOWN INDICATION
     Dosage: 2 DF;BID;INH
     Route: 055
     Dates: start: 20100922, end: 20100929
  2. FORADIL [Suspect]
     Indication: PRODUCT USED FOR UNKNOWN INDICATION
  3. PULMICORT RESPULES [Suspect]
     Indication: PRODUCT USED FOR UNKNOWN INDICATION

REACTIONS (1)
  - AGGRESSION [None]
